FAERS Safety Report 15882042 (Version 1)
Quarter: 2019Q1

REPORT INFORMATION
  Report Type: Report from Study
  Country: US (occurrence: US)
  Receive Date: 20190128
  Receipt Date: 20190128
  Transmission Date: 20190417
  Serious: Yes (Hospitalization, Other)
  Sender: FDA-Public Use
  Company Number: US-GILEAD-2019-0386888

PATIENT
  Age: 41 Year
  Sex: Male

DRUGS (13)
  1. AZTREONAM LYSINE [Suspect]
     Active Substance: AZTREONAM LYSINE
     Indication: CYSTIC FIBROSIS
     Dosage: INHALE 1 VIAL VIA NEBULIZER TID QOM
     Route: 055
     Dates: start: 20130911
  2. SODIUM CHLORIDE. [Concomitant]
     Active Substance: SODIUM CHLORIDE
     Route: 065
  3. DOXYCYC MONO [Concomitant]
     Active Substance: DOXYCYCLINE
  4. SYMDEKO [Concomitant]
     Active Substance: IVACAFTOR\TEZACAFTOR
     Route: 065
  5. AZITHROMYCIN ANHYDROUS. [Concomitant]
     Active Substance: AZITHROMYCIN ANHYDROUS
     Route: 065
  6. BETHKIS [Concomitant]
     Active Substance: TOBRAMYCIN
     Route: 065
  7. LEVOFLOXACIN. [Concomitant]
     Active Substance: LEVOFLOXACIN
     Route: 065
  8. ZENPEP [Concomitant]
     Active Substance: PANCRELIPASE AMYLASE\PANCRELIPASE LIPASE\PANCRELIPASE PROTEASE
     Route: 065
  9. COMPLETE FORM D300 [Concomitant]
     Route: 065
  10. VALACYCLOVIR [Concomitant]
     Active Substance: VALACYCLOVIR HYDROCHLORIDE
     Route: 065
  11. APAP [Concomitant]
     Active Substance: ACETAMINOPHEN
     Route: 065
  12. PULMOZYME [Concomitant]
     Active Substance: DORNASE ALFA
     Route: 065
  13. CIPROFLOXACIN. [Concomitant]
     Active Substance: CIPROFLOXACIN
     Route: 065

REACTIONS (1)
  - Cystic fibrosis [Unknown]
